FAERS Safety Report 20897862 (Version 1)
Quarter: 2022Q2

REPORT INFORMATION
  Report Type: Spontaneous
  Country: US (occurrence: US)
  Receive Date: 20220531
  Receipt Date: 20220531
  Transmission Date: 20220721
  Serious: No
  Sender: FDA-Public Use
  Company Number: US-PFIZER INC-202200770478

PATIENT
  Age: 40 Year
  Sex: Female
  Weight: 83.01 kg

DRUGS (5)
  1. PAXLOVID [Suspect]
     Active Substance: NIRMATRELVIR\RITONAVIR
     Indication: COVID-19 treatment
     Dosage: [PF-07321332 300 MG]/[RITONAVIR 100 MG]
     Dates: start: 20220525
  2. AMBIEN [Concomitant]
     Active Substance: ZOLPIDEM TARTRATE
     Indication: Sleep disorder
     Dosage: 10 MG
  3. XANAX [Concomitant]
     Active Substance: ALPRAZOLAM
     Indication: Anxiety
     Dosage: 0.5 MG
  4. OMEPRAZOLE [Concomitant]
     Active Substance: OMEPRAZOLE
     Indication: Gastrooesophageal reflux disease
     Dosage: UNK
  5. TUMS [Concomitant]
     Active Substance: CALCIUM CARBONATE
     Indication: Gastrooesophageal reflux disease
     Dosage: UNK

REACTIONS (3)
  - Dysgeusia [Not Recovered/Not Resolved]
  - Anxiety [Unknown]
  - Nervousness [Unknown]

NARRATIVE: CASE EVENT DATE: 20220525
